FAERS Safety Report 7903174-0 (Version None)
Quarter: 2011Q4

REPORT INFORMATION
  Report Type: 
  Country: None (occurrence: None)
  Receive Date: 20111108
  Receipt Date: 20111108
  Transmission Date: 20120403
  Serious: Yes (Other)
  Sender: FDA-Public Use
  Company Number: None

PATIENT
  Sex: Male
  Weight: 97.5234 kg

DRUGS (2)
  1. VYVANSE [Suspect]
     Indication: NARCOLEPSY
     Dosage: 50 MG QAM PO DAILY
     Route: 048
     Dates: start: 20110615
  2. VYVANSE [Suspect]
     Indication: ATTENTION DEFICIT/HYPERACTIVITY DISORDER
     Dosage: 50 MG QAM PO DAILY
     Route: 048
     Dates: start: 20110615

REACTIONS (2)
  - SOMNAMBULISM [None]
  - SLEEP TALKING [None]
